FAERS Safety Report 16914386 (Version 1)
Quarter: 2019Q4

REPORT INFORMATION
  Report Type: Spontaneous
  Country: US (occurrence: US)
  Receive Date: 20191014
  Receipt Date: 20191014
  Transmission Date: 20200122
  Serious: Yes (Other)
  Sender: FDA-Public Use
  Company Number: US-SA-2019SA276976

PATIENT
  Age: 61 Year
  Sex: Male

DRUGS (2)
  1. RASBURICASE [Suspect]
     Active Substance: RASBURICASE
     Indication: TUMOUR LYSIS SYNDROME
  2. OXYGEN. [Concomitant]
     Active Substance: OXYGEN
     Indication: OXYGEN THERAPY
     Dosage: SUSUPPLEMENTAL OXYGEN

REACTIONS (4)
  - Methaemoglobinaemia [Recovering/Resolving]
  - Haemolysis [Recovering/Resolving]
  - Hypoxia [Recovering/Resolving]
  - Encephalopathy [Recovering/Resolving]
